FAERS Safety Report 25212684 (Version 4)
Quarter: 2025Q4

REPORT INFORMATION
  Report Type: Spontaneous
  Country: JP (occurrence: JP)
  Receive Date: 20250418
  Receipt Date: 20251021
  Transmission Date: 20260118
  Serious: Yes (Hospitalization, Other)
  Sender: ALEXION PHARMACEUTICALS
  Company Number: JP-AstraZeneca-CH-00847399A

PATIENT
  Age: 63 Year
  Sex: Female

DRUGS (4)
  1. ULTOMIRIS [Suspect]
     Active Substance: RAVULIZUMAB-CWVZ
     Indication: Atypical haemolytic uraemic syndrome
     Dosage: UNK
  2. GUSPERIMUS TRIHYDROCHLORIDE [Concomitant]
     Active Substance: GUSPERIMUS TRIHYDROCHLORIDE
     Indication: Kidney transplant rejection
     Dosage: UNK
     Route: 065
  3. EVEROLIMUS [Concomitant]
     Active Substance: EVEROLIMUS
     Indication: Kidney transplant rejection
     Dosage: UNK
     Route: 065
  4. MYCOPHENOLIC ACID [Concomitant]
     Active Substance: MYCOPHENOLIC ACID
     Dosage: UNK
     Route: 065

REACTIONS (1)
  - Meningitis cryptococcal [Recovering/Resolving]

NARRATIVE: CASE EVENT DATE: 20250301
